FAERS Safety Report 9321276 (Version 2)
Quarter: 2013Q2

REPORT INFORMATION
  Report Type: Spontaneous
  Country: US (occurrence: US)
  Receive Date: 20130531
  Receipt Date: 20130624
  Transmission Date: 20140414
  Serious: No
  Sender: FDA-Public Use
  Company Number: US-PFIZER INC-2013166111

PATIENT
  Age: 53 Year
  Sex: Male

DRUGS (5)
  1. EFFEXOR XR [Suspect]
     Indication: ANXIETY
     Dosage: AT 3 CAPSULES DAILY (225 MG)
     Route: 048
     Dates: start: 20010322
  2. EFFEXOR XR [Suspect]
     Indication: DEPRESSION
  3. REMERON [Concomitant]
     Dosage: 15 MG AT BEDTIME
  4. CLOZAPINE [Concomitant]
     Dosage: 75 MG AT BEDTIME
  5. KLONOPIN [Concomitant]
     Dosage: 0.5 TWICE A DAY

REACTIONS (2)
  - Erectile dysfunction [Unknown]
  - Ejaculation disorder [Unknown]
